FAERS Safety Report 9127333 (Version 1)
Quarter: 2013Q1

REPORT INFORMATION
  Report Type: Report from Study
  Country: US (occurrence: US)
  Receive Date: 20130228
  Receipt Date: 20130228
  Transmission Date: 20140127
  Serious: No
  Sender: FDA-Public Use
  Company Number: US-VERTEX PHARMACEUTICALS INC.-2013-002788

PATIENT
  Sex: Female

DRUGS (4)
  1. VX-950 (TELAPREVIR) [Suspect]
     Indication: HEPATITIS C
     Dosage: UNK
     Route: 048
  2. RIBASPHERE [Suspect]
     Indication: HEPATITIS C
     Dosage: 600 MG IN AM/ 400 MG IN PM
     Route: 048
     Dates: start: 20130213
  3. RIBASPHERE [Suspect]
     Dosage: DOSE DECREASED
     Route: 048
  4. PEGASYS [Suspect]
     Indication: HEPATITIS C
     Dosage: 180 ?G, QW
     Route: 058
     Dates: start: 20130213

REACTIONS (4)
  - Blood potassium decreased [Unknown]
  - Anaemia [Unknown]
  - Anorectal discomfort [Unknown]
  - Pruritus generalised [Unknown]
